FAERS Safety Report 4708276-8 (Version None)
Quarter: 2005Q3

REPORT INFORMATION
  Report Type: 
  Country: None (occurrence: None)
  Receive Date: 20050705
  Receipt Date: 20050705
  Transmission Date: 20060218
  Serious: Yes (Hospitalization, Disabling)
  Sender: FDA-Public Use
  Company Number: None

PATIENT
  Sex: Male
  Weight: 98.8842 kg

DRUGS (1)
  1. GENTAMICIN [Suspect]
     Indication: LUNG INFECTION
     Dosage: 170ML 3X/DAY INTRAVENOUS
     Route: 042
     Dates: start: 20050513, end: 20050527

REACTIONS (2)
  - DYSSTASIA [None]
  - VESTIBULAR DISORDER [None]
